FAERS Safety Report 17045805 (Version 3)
Quarter: 2021Q2

REPORT INFORMATION
  Report Type: Spontaneous
  Country: US (occurrence: US)
  Receive Date: 20191118
  Receipt Date: 20210615
  Transmission Date: 20210716
  Serious: Yes (Other)
  Sender: FDA-Public Use
  Company Number: NVSC2019US039794

PATIENT
  Age: 5 Year
  Sex: Female

DRUGS (3)
  1. LUXTURNA [Suspect]
     Active Substance: VORETIGENE NEPARVOVEC-RZYL
     Indication: LEBER^S CONGENITAL AMAUROSIS
     Dosage: 0.3 ML (BOTH EYES TREATED WITH ONE WEEK APART)
     Route: 050
  2. TRIAMCINOLONE [Suspect]
     Active Substance: TRIAMCINOLONE
     Indication: PRODUCT USED FOR UNKNOWN INDICATION
     Dosage: 40 MG, QD
     Route: 065
  3. LUXTURNA [Suspect]
     Active Substance: VORETIGENE NEPARVOVEC-RZYL
     Dosage: 0.3 ML (BOTH EYES TREATED WITH ONE WEEK APART)
     Route: 050

REACTIONS (1)
  - Ocular hypertension [Unknown]
